FAERS Safety Report 11649351 (Version 2)
Quarter: 2015Q4

REPORT INFORMATION
  Report Type: Report from Study
  Country: US (occurrence: None)
  Receive Date: 20151021
  Receipt Date: 20151023
  Transmission Date: 20160304
  Serious: Yes (Hospitalization, Other)
  Sender: FDA-Public Use
  Company Number: ADR-2014-02072

PATIENT
  Age: 42 Year
  Sex: Female

DRUGS (1)
  1. COMPOUNDED BACLOFEN 2000 MCG/ML [Suspect]
     Active Substance: BACLOFEN
     Indication: MUSCLE SPASTICITY
     Dosage: 350.5 MCG/DAY

REACTIONS (4)
  - Wound infection staphylococcal [None]
  - Staphylococcus test positive [None]
  - Implant site pustules [None]
  - Implant site infection [None]
